FAERS Safety Report 20223439 (Version 1)
Quarter: 2021Q4

REPORT INFORMATION
  Report Type: Report from Study
  Country: US (occurrence: US)
  Receive Date: 20211223
  Receipt Date: 20211223
  Transmission Date: 20220304
  Serious: Yes (Hospitalization)
  Sender: FDA-Public Use
  Company Number: US-ABBVIE-21P-163-4207649-00

PATIENT
  Age: 58 Year
  Sex: Female

DRUGS (11)
  1. VENETOCLAX [Suspect]
     Active Substance: VENETOCLAX
     Indication: Acute myeloid leukaemia
     Dosage: DOSE LEVEL, PHASE II, ARM A, CYCLE 1 (INDUCTION CYCLE 1)
     Route: 048
     Dates: start: 20210626, end: 20210626
  2. VENETOCLAX [Suspect]
     Active Substance: VENETOCLAX
     Dosage: DOSE LEVEL, PHASE II, ARM A, CYCLE 1 (INDUCTION CYCLE 1)
     Route: 048
     Dates: start: 20210627, end: 20210627
  3. VENETOCLAX [Suspect]
     Active Substance: VENETOCLAX
     Dosage: DOSE LEVEL, PHASE II, ARM A, CYCLE 1 (INDUCTION CYCLE 1), DAYS 3-11
     Route: 048
     Dates: start: 20210628, end: 20210706
  4. VENETOCLAX [Suspect]
     Active Substance: VENETOCLAX
     Dosage: DOSE LEVEL, PHASE II, ARM A, CYCLE 1 (INDUCTION CYCLE 1)
     Route: 048
     Dates: start: 20210707, end: 20210709
  5. FLUDARABINE [Concomitant]
     Active Substance: FLUDARABINE PHOSPHATE
     Indication: Acute myeloid leukaemia
     Dosage: 30 MG/M2 ON DAYS 2-6
     Route: 042
     Dates: start: 20210627, end: 20210701
  6. CYTARABINE [Concomitant]
     Active Substance: CYTARABINE
     Indication: Acute myeloid leukaemia
     Dosage: 1.5 G/M2 ON DAYS 2-6 AFTER COMPLETION OF FLUDARABINE
     Route: 042
     Dates: start: 20210627, end: 20210701
  7. IDARUBICIN [Concomitant]
     Active Substance: IDARUBICIN
     Indication: Acute myeloid leukaemia
     Dosage: 8 MG/M2 FOLLOWING FLUDARABINE
     Route: 042
     Dates: start: 20210629, end: 20210701
  8. FILGRASTIM [Concomitant]
     Active Substance: FILGRASTIM
     Indication: Product used for unknown indication
     Dosage: DAYS 1-5
     Dates: start: 20210626, end: 20210701
  9. NEULASTA [Concomitant]
     Active Substance: PEGFILGRASTIM
     Indication: Product used for unknown indication
     Dates: start: 20210702, end: 20210702
  10. CASPOFUNGIN [Concomitant]
     Active Substance: CASPOFUNGIN
     Indication: Product used for unknown indication
     Dates: end: 20210706
  11. POSACONAZOLE [Concomitant]
     Active Substance: POSACONAZOLE
     Indication: Product used for unknown indication
     Dates: start: 20210707

REACTIONS (2)
  - Cellulitis [Recovered/Resolved]
  - Febrile neutropenia [Recovered/Resolved]

NARRATIVE: CASE EVENT DATE: 20210808
